FAERS Safety Report 15614110 (Version 1)
Quarter: 2018Q4

REPORT INFORMATION
  Report Type: Other
  Country: CN (occurrence: CN)
  Receive Date: 20181113
  Receipt Date: 20181113
  Transmission Date: 20190205
  Serious: Yes (Other)
  Sender: FDA-Public Use
  Company Number: CN-IMPAX LABORATORIES, LLC-2018-IPXL-03741

PATIENT
  Age: 9 Year
  Sex: Female
  Weight: 25 kg

DRUGS (2)
  1. ALBENZA [Suspect]
     Active Substance: ALBENDAZOLE
     Indication: ASCARIASIS
     Dosage: 2 DOSAGE FORM, ONCE DAILY
     Route: 048
     Dates: start: 201809, end: 2018
  2. ALBENZA [Suspect]
     Active Substance: ALBENDAZOLE
     Indication: PRODUCT USE IN UNAPPROVED INDICATION

REACTIONS (4)
  - Diarrhoea [Recovered/Resolved]
  - Product use in unapproved indication [Unknown]
  - Hyperpyrexia [Recovered/Resolved]
  - Dizziness [Recovered/Resolved]

NARRATIVE: CASE EVENT DATE: 201809
